FAERS Safety Report 12459231 (Version 4)
Quarter: 2016Q3

REPORT INFORMATION
  Report Type: Report from Study
  Country: PA (occurrence: PA)
  Receive Date: 20160613
  Receipt Date: 20160907
  Transmission Date: 20161109
  Serious: Yes (Other)
  Sender: FDA-Public Use
  Company Number: PHHY2016PA070228

PATIENT
  Age: 66 Year
  Sex: Male

DRUGS (3)
  1. TASIGNA [Suspect]
     Active Substance: NILOTINIB
     Indication: CHRONIC MYELOID LEUKAEMIA
     Dosage: 2 DF, BID (MORNING AND NIGHT)
     Route: 065
     Dates: start: 20160310
  2. AMLODIPINE [Concomitant]
     Active Substance: AMLODIPINE BESYLATE
     Indication: HYPERTENSION
     Route: 065
  3. TASIGNA [Suspect]
     Active Substance: NILOTINIB
     Dosage: 1 DF, BID (MORNING AND NIGHT)
     Route: 065
     Dates: start: 201606

REACTIONS (4)
  - Platelet count decreased [Recovering/Resolving]
  - Nasopharyngitis [Recovered/Resolved]
  - Haemoglobin decreased [Unknown]
  - Cough [Unknown]

NARRATIVE: CASE EVENT DATE: 20160818
